FAERS Safety Report 21211411 (Version 1)
Quarter: 2022Q3

REPORT INFORMATION
  Report Type: Spontaneous
  Country: US (occurrence: None)
  Receive Date: 20220812
  Receipt Date: 20220812
  Transmission Date: 20221026
  Serious: Yes (Hospitalization)
  Sender: FDA-Public Use
  Company Number: None

PATIENT
  Age: 12 Year
  Sex: Male
  Weight: 61.23 kg

DRUGS (2)
  1. MAGNESIUM CITRATE SALINE LAXATIVE [Suspect]
     Active Substance: MAGNESIUM CITRATE
     Indication: Constipation
     Dosage: FREQUENCY : ONCE;?
     Route: 048
     Dates: start: 20220331, end: 20220331
  2. GUANFACINE [Concomitant]
     Active Substance: GUANFACINE

REACTIONS (3)
  - Diarrhoea haemorrhagic [None]
  - Proctitis [None]
  - Gastrointestinal inflammation [None]

NARRATIVE: CASE EVENT DATE: 20220331
